FAERS Safety Report 8391474-2 (Version None)
Quarter: 2012Q2

REPORT INFORMATION
  Report Type: 
  Country: None (occurrence: None)
  Receive Date: 20120529
  Receipt Date: 20120523
  Transmission Date: 20120825
  Serious: Yes (Hospitalization)
  Sender: FDA-Public Use
  Company Number: US-BAYER-2012-052057

PATIENT
  Age: 40 Year
  Sex: Female

DRUGS (3)
  1. MOTRIN [Concomitant]
  2. YAZ [Suspect]
     Indication: ACNE
  3. VALTREX [Concomitant]

REACTIONS (1)
  - PULMONARY EMBOLISM [None]
